FAERS Safety Report 6239887-9 (Version None)
Quarter: 2009Q2

REPORT INFORMATION
  Report Type: 
  Country: None (occurrence: None)
  Receive Date: 20090619
  Receipt Date: 20090609
  Transmission Date: 20091009
  Serious: Yes (Hospitalization)
  Sender: FDA-Public Use
  Company Number: AE-2009-079

PATIENT
  Age: 3 Month
  Sex: Male

DRUGS (2)
  1. HYDROCHLOROTHIAZIDE [Suspect]
     Indication: NEPHROGENIC DIABETES INSIPIDUS
     Dosage: 2MG/KG, DAILY, ORAL
     Route: 048
  2. INDOMETHACIN [Suspect]
     Indication: NEPHROGENIC DIABETES INSIPIDUS
     Dosage: 2MG/KG, DAILY, ORAL
     Route: 048

REACTIONS (2)
  - POLYDIPSIA [None]
  - WATER INTOXICATION [None]
